FAERS Safety Report 10130100 (Version 1)
Quarter: 2014Q2

REPORT INFORMATION
  Report Type: Spontaneous
  Country: US (occurrence: None)
  Receive Date: 20140425
  Receipt Date: 20140425
  Transmission Date: 20141212
  Serious: Yes (Hospitalization, Other)
  Sender: FDA-Public Use
  Company Number: None

PATIENT
  Age: 37 Year
  Sex: Female
  Weight: 79.38 kg

DRUGS (1)
  1. DEXAMETHASONE [Suspect]
     Indication: BACK PAIN
     Dosage: EPIDURAL INJECTION, INJECTED INTO SPINAL AREA
     Route: 008
     Dates: start: 20100113, end: 20100113

REACTIONS (4)
  - Headache [None]
  - Blindness [None]
  - Suicidal ideation [None]
  - Convulsion [None]
